FAERS Safety Report 11266314 (Version 1)
Quarter: 2015Q3

REPORT INFORMATION
  Report Type: Spontaneous
  Country: GB (occurrence: GB)
  Receive Date: 20150713
  Receipt Date: 20150713
  Transmission Date: 20151125
  Serious: Yes (Hospitalization)
  Sender: FDA-Public Use
  Company Number: GB-ASTRAZENECA-2015SE66797

PATIENT
  Age: 87 Year
  Sex: Female

DRUGS (5)
  1. CODEINE [Concomitant]
     Active Substance: CODEINE
  2. AMLODIPINE [Concomitant]
     Active Substance: AMLODIPINE BESYLATE
  3. OMEPRAZOLE. [Suspect]
     Active Substance: OMEPRAZOLE
     Indication: GASTROOESOPHAGEAL REFLUX DISEASE
     Route: 051
     Dates: end: 20150626
  4. COCODAMOL [Concomitant]
     Active Substance: ACETAMINOPHEN\CODEINE PHOSPHATE
  5. LEVOTHYROXINE. [Concomitant]
     Active Substance: LEVOTHYROXINE

REACTIONS (3)
  - Hypomagnesaemia [Recovering/Resolving]
  - Hypocalcaemia [Recovering/Resolving]
  - Tetany [Recovering/Resolving]

NARRATIVE: CASE EVENT DATE: 20150626
